FAERS Safety Report 4847609-9 (Version None)
Quarter: 2005Q4

REPORT INFORMATION
  Report Type: 
  Country: None (occurrence: None)
  Receive Date: 20051205
  Receipt Date: 20051124
  Transmission Date: 20060501
  Serious: Yes (Hospitalization)
  Sender: FDA-Public Use
  Company Number: 2005159852

PATIENT
  Age: 74 Year
  Sex: Male

DRUGS (2)
  1. ACUITEL (QUINAPRIL HYDROCHLORIDE) [Suspect]
     Indication: ESSENTIAL HYPERTENSION
     Dosage: 20 MG (20 MG, DAILY), ORAL
     Route: 048
     Dates: end: 20051015
  2. BRONCHOKOD (CARBOCISTEINE) [Concomitant]

REACTIONS (5)
  - DENTAL CARIES [None]
  - DYSPNOEA [None]
  - MACROGLOSSIA [None]
  - PHARYNGEAL OEDEMA [None]
  - TONGUE OEDEMA [None]
